FAERS Safety Report 13544800 (Version 1)
Quarter: 2017Q2

REPORT INFORMATION
  Report Type: Spontaneous
  Country: US (occurrence: US)
  Receive Date: 20170513
  Receipt Date: 20170513
  Transmission Date: 20170830
  Serious: Yes (Hospitalization)
  Sender: FDA-Public Use
  Company Number: None

PATIENT
  Age: 13 Year
  Sex: Male
  Weight: 61.5 kg

DRUGS (2)
  1. ETOPOSIDE (VP-16) [Suspect]
     Active Substance: ETOPOSIDE
     Dates: end: 20150228
  2. CARBOPLATIN. [Suspect]
     Active Substance: CARBOPLATIN
     Dates: end: 20150226

REACTIONS (6)
  - Hyponatraemia [None]
  - Hydrocephalus [None]
  - Somnolence [None]
  - Headache [None]
  - Diplopia [None]
  - Disorientation [None]

NARRATIVE: CASE EVENT DATE: 20150314
